FAERS Safety Report 13842984 (Version 2)
Quarter: 2017Q3

REPORT INFORMATION
  Report Type: Report from Study
  Country: None (occurrence: BR)
  Receive Date: 20170808
  Receipt Date: 20170811
  Transmission Date: 20171127
  Serious: Yes (Hospitalization, Other)
  Sender: FDA-Public Use
  Company Number: BR-ABBVIE-17K-020-2062413-00

PATIENT
  Age: 34 Year
  Sex: Male
  Weight: 90 kg

DRUGS (1)
  1. HUMIRA [Suspect]
     Active Substance: ADALIMUMAB
     Indication: CROHN^S DISEASE
     Dosage: LOADING DOSE
     Route: 058
     Dates: start: 20170722, end: 20170722

REACTIONS (3)
  - Crohn^s disease [Recovering/Resolving]
  - Haematochezia [Recovering/Resolving]
  - Haematemesis [Recovering/Resolving]

NARRATIVE: CASE EVENT DATE: 20170729
